FAERS Safety Report 7405290-9 (Version None)
Quarter: 2011Q2

REPORT INFORMATION
  Report Type: 
  Country: None (occurrence: None)
  Receive Date: 20110411
  Receipt Date: 20110328
  Transmission Date: 20111010
  Serious: Yes (Other)
  Sender: FDA-Public Use
  Company Number: PHFR2011GB02256

PATIENT
  Sex: Male

DRUGS (4)
  1. PERINDOPRIL ERBUMINE [Concomitant]
     Dosage: 4 MG, UNK
  2. LORAZEPAM [Concomitant]
     Dosage: 3 MG, UNK
  3. CLOZARIL [Suspect]
     Indication: SCHIZOPHRENIA
     Dosage: 350 MG, QD
     Dates: start: 20070301
  4. CETIRIZINE HCL [Concomitant]
     Dosage: 10 MG, UNK

REACTIONS (4)
  - GLAUCOMA [None]
  - HODGKIN'S DISEASE [None]
  - PNEUMONIA [None]
  - SLEEP APNOEA SYNDROME [None]
